FAERS Safety Report 8206850-8 (Version None)
Quarter: 2012Q1

REPORT INFORMATION
  Report Type: 
  Country: None (occurrence: None)
  Receive Date: 20120312
  Receipt Date: 20120229
  Transmission Date: 20120608
  Serious: Yes (Death, Life-Threatening, Disabling, Other)
  Sender: FDA-Public Use
  Company Number: AUR-APL-2011-00632

PATIENT
  Age: 56 Year
  Sex: Male
  Weight: 64.05 kg

DRUGS (8)
  1. TRAMADOL HYDROCHLORIDE [Suspect]
     Indication: PAIN
     Dosage: ORAL
     Route: 048
     Dates: start: 20080926, end: 20090702
  2. CEFTRIAXONE [Suspect]
     Indication: PNEUMONIA
     Dosage: (2 GM,1 D),INTRAVENOUS
     Route: 042
     Dates: start: 20090630, end: 20090630
  3. TEMAZEPAM [Suspect]
     Indication: INSOMNIA
     Dosage: (15 MG,1 D),ORAL
     Route: 048
     Dates: start: 20090401, end: 20090702
  4. MOXIFLOXACIN HCL [Suspect]
     Indication: PNEUMONIA
     Dosage: (400 MG,1 D),ORAL
     Route: 048
     Dates: start: 20090629, end: 20090702
  5. MAGE3-AS15-ASCI [Suspect]
     Indication: NON-SMALL CELL LUNG CANCER
     Dosage: (300 IU,ONCE),INTRAMUSCULAR
     Route: 030
     Dates: start: 20090701, end: 20090701
  6. OXYCODONE HCL [Suspect]
     Indication: BACK PAIN
     Dosage: ORAL ; ORAL
     Route: 048
     Dates: start: 20090428, end: 20090702
  7. OXYCODONE HCL [Suspect]
     Indication: BACK PAIN
     Dosage: ORAL ; ORAL
     Route: 048
     Dates: start: 20090618, end: 20090702
  8. PF-03512676 [Suspect]
     Indication: NON-SMALL CELL LUNG CANCER
     Dosage: (300 IU),INTRAMUSCULAR
     Route: 030
     Dates: start: 20090701, end: 20090701

REACTIONS (6)
  - CHOLELITHIASIS [None]
  - VENTRICULAR HYPERTROPHY [None]
  - ARTERIOSCLEROSIS [None]
  - EMPYEMA [None]
  - CARDIOMEGALY [None]
  - PNEUMONIA [None]
